FAERS Safety Report 6770474 (Version 3)
Quarter: 2014Q1

REPORT INFORMATION
  Report Type: Spontaneous
  Country: FR (occurrence: FR)
  Receive Date: 20080925
  Receipt Date: 20140318
  Transmission Date: 20141002
  Serious: Yes (Other)
  Sender: FDA-Public Use
  Company Number: FR-JNJFOC-20080904709

PATIENT
  Sex: Male

DRUGS (11)
  1. TOPALGIC [Suspect]
     Indication: BACK PAIN
     Route: 048
  2. TOPALGIC [Suspect]
     Indication: BACK PAIN
     Route: 048
  3. TOPALGIC [Suspect]
     Indication: BACK PAIN
     Route: 048
     Dates: start: 199911
  4. TOPALGIC [Suspect]
     Indication: BACK PAIN
     Route: 048
     Dates: start: 199911
  5. TOPALGIC [Suspect]
     Indication: BACK PAIN
     Route: 048
     Dates: start: 2011
  6. AMLOR [Concomitant]
     Indication: HYPERTENSION
  7. RAMIPRIL [Concomitant]
     Indication: HYPERTENSION
     Route: 065
  8. ZOXON (DOXAZOSIN MESYLATE) [Concomitant]
     Indication: BENIGN PROSTATIC HYPERPLASIA
  9. FORMOTEROL FUMARATE [Concomitant]
     Indication: CHRONIC OBSTRUCTIVE PULMONARY DISEASE
     Route: 065
  10. BUDESONIDE [Concomitant]
     Indication: CHRONIC OBSTRUCTIVE PULMONARY DISEASE
     Route: 065
  11. ZOLPIDEM [Concomitant]
     Indication: INSOMNIA
     Route: 065

REACTIONS (11)
  - Aggression [Not Recovered/Not Resolved]
  - Drug tolerance increased [Not Recovered/Not Resolved]
  - Extrasystoles [Recovered/Resolved]
  - Drug dependence [Not Recovered/Not Resolved]
  - Depression [Not Recovered/Not Resolved]
  - Drug withdrawal syndrome [Recovered/Resolved]
  - Palpitations [Recovered/Resolved]
  - Sleep disorder [Not Recovered/Not Resolved]
  - Agitation [Not Recovered/Not Resolved]
  - Fatigue [Not Recovered/Not Resolved]
  - Somnolence [Not Recovered/Not Resolved]
